FAERS Safety Report 7123980-2 (Version None)
Quarter: 2010Q4

REPORT INFORMATION
  Report Type: 
  Country: None (occurrence: None)
  Receive Date: 20101126
  Receipt Date: 20101117
  Transmission Date: 20110411
  Serious: No
  Sender: FDA-Public Use
  Company Number: US-PFIZER INC-2010135539

PATIENT
  Sex: Female
  Weight: 61.7 kg

DRUGS (6)
  1. TIKOSYN [Suspect]
     Indication: ATRIAL FIBRILLATION
     Dosage: 0.25 MG, 2X/DAY
     Route: 048
     Dates: start: 20100915, end: 20101018
  2. NADOLOL [Suspect]
     Indication: ATRIAL FIBRILLATION
     Dosage: UNK
  3. DIGOXIN [Concomitant]
     Indication: ATRIAL FIBRILLATION
     Dosage: 0.125 MG, DAILY
  4. WARFARIN [Concomitant]
     Indication: ATRIAL FIBRILLATION
     Dosage: UNK
  5. ZOCOR [Concomitant]
     Dosage: 10 MG, DAILY
  6. SYNTHROID [Concomitant]
     Dosage: 0.1 MG, DAILY

REACTIONS (2)
  - DIARRHOEA [None]
  - FATIGUE [None]
